FAERS Safety Report 22172248 (Version 1)
Quarter: 2023Q2

REPORT INFORMATION
  Report Type: Other
  Country: None (occurrence: US)
  Receive Date: 20230404
  Receipt Date: 20230404
  Transmission Date: 20230722
  Serious: Yes (Other)
  Sender: FDA-Public Use
  Company Number: US-BIOLOGICAL E. LTD-2139871

PATIENT
  Age: 18 Year
  Sex: Female

DRUGS (2)
  1. SODIUM NITROPRUSSIDE [Suspect]
     Active Substance: SODIUM NITROPRUSSIDE
     Indication: Cardiogenic shock
     Route: 065
  2. MILRINONE LACTATE [Suspect]
     Active Substance: MILRINONE LACTATE
     Route: 065

REACTIONS (1)
  - Drug ineffective [Unknown]
